FAERS Safety Report 23608445 (Version 1)
Quarter: 2024Q1

REPORT INFORMATION
  Report Type: Spontaneous
  Country: GB (occurrence: GB)
  Receive Date: 20240307
  Receipt Date: 20240307
  Transmission Date: 20240409
  Serious: Yes (Other)
  Sender: FDA-Public Use
  Company Number: GB-ABBVIE-5625809

PATIENT
  Sex: Male

DRUGS (1)
  1. DALBAVANCIN HYDROCHLORIDE [Suspect]
     Active Substance: DALBAVANCIN HYDROCHLORIDE
     Indication: Osteomyelitis
     Dosage: DURATION TEXT: 4 MONTHS OF THERAPY?FORM STRENGTH- 500MG
     Route: 065

REACTIONS (6)
  - Osteonecrosis of jaw [Unknown]
  - Swelling face [Recovering/Resolving]
  - Off label use [Not Recovered/Not Resolved]
  - Living in residential institution [Unknown]
  - Pain [Recovered/Resolved]
  - Head and neck cancer [Unknown]
